FAERS Safety Report 4714404-0 (Version None)
Quarter: 2005Q3

REPORT INFORMATION
  Report Type: 
  Country: None (occurrence: None)
  Receive Date: 20050714
  Receipt Date: 20050704
  Transmission Date: 20060218
  Serious: Yes (Hospitalization)
  Sender: FDA-Public Use
  Company Number: FR-GLAXOSMITHKLINE-B0387325A

PATIENT
  Age: 30 Year
  Sex: Female
  Weight: 49 kg

DRUGS (9)
  1. SALBUMOL FORT [Suspect]
     Indication: PREMATURE LABOUR
     Dosage: 10MGML PER DAY
     Route: 042
     Dates: start: 20050602, end: 20050604
  2. CELESTENE [Suspect]
     Indication: PREMATURE LABOUR
     Dosage: 12MG PER DAY
     Route: 030
     Dates: start: 20050601, end: 20050602
  3. SALBUMOL [Concomitant]
     Indication: PREMATURE LABOUR
     Dosage: 1MG FOUR TIMES PER DAY
     Route: 054
     Dates: start: 20050601, end: 20050602
  4. SALBUMOL [Concomitant]
     Dosage: 2INJ PER DAY
     Route: 030
     Dates: start: 20050601, end: 20050602
  5. SALBUMOL [Concomitant]
     Route: 048
     Dates: end: 20050601
  6. ATARAX [Concomitant]
     Dosage: 25MG PER DAY
     Route: 048
     Dates: start: 20050601, end: 20050605
  7. TARDYFERON [Concomitant]
     Dosage: 80MG PER DAY
     Route: 048
     Dates: start: 20050601
  8. ADALAT [Concomitant]
     Indication: PREMATURE LABOUR
     Dosage: 20MG THREE TIMES PER DAY
     Route: 048
     Dates: start: 20050601, end: 20050605
  9. SPASFON [Concomitant]
     Route: 048
     Dates: end: 20050601

REACTIONS (15)
  - ACUTE PULMONARY OEDEMA [None]
  - CHEST DISCOMFORT [None]
  - CHEST X-RAY ABNORMAL [None]
  - COUGH [None]
  - DRUG EXPOSURE DURING PREGNANCY [None]
  - DYSPNOEA [None]
  - FIBRIN D DIMER INCREASED [None]
  - HYPOCAPNIA [None]
  - HYPOXIA [None]
  - LUNG INFECTION [None]
  - PULMONARY EMBOLISM [None]
  - PYREXIA [None]
  - RALES [None]
  - SENSE OF OPPRESSION [None]
  - TACHYCARDIA [None]
